FAERS Safety Report 5036900-1 (Version None)
Quarter: 2006Q2

REPORT INFORMATION
  Report Type: 
  Country: None (occurrence: None)
  Receive Date: 20060622
  Receipt Date: 20060606
  Transmission Date: 20061013
  Serious: No
  Sender: FDA-Public Use
  Company Number: US200605001818

PATIENT
  Age: 40 Year
  Sex: Female

DRUGS (3)
  1. CYMBALTA [Suspect]
     Indication: DEPRESSION
     Dosage: 60 MG, DAILY (1/D), ORAL; 30 MG, DAILY (1/D); 30 MG, OTHER
     Route: 048
     Dates: start: 20051201
  2. HYOSCYAMINE (HYOSCYAMINE) [Concomitant]
  3. VITAMINS NOS (VITAMINS NOS) [Concomitant]

REACTIONS (5)
  - DIARRHOEA [None]
  - DIZZINESS [None]
  - FEELING DRUNK [None]
  - HEPATIC ENZYME INCREASED [None]
  - SLUGGISHNESS [None]
